FAERS Safety Report 6554936-6 (Version None)
Quarter: 2010Q1

REPORT INFORMATION
  Report Type: 
  Country: None (occurrence: None)
  Receive Date: 20100126
  Receipt Date: 20100121
  Transmission Date: 20100710
  Serious: Yes (Disabling)
  Sender: FDA-Public Use
  Company Number: 2009EU001478

PATIENT
  Sex: Female
  Weight: 60 kg

DRUGS (6)
  1. VESICARE [Suspect]
     Indication: INCONTINENCE
     Dosage: ORAL
     Route: 048
  2. EFFEXOR [Suspect]
     Indication: DEPRESSION
     Dosage: 75 MG, ORAL; 150 MG, ORAL
     Route: 048
     Dates: start: 20080729, end: 20080731
  3. EFFEXOR [Suspect]
     Indication: DEPRESSION
     Dosage: 75 MG, ORAL; 150 MG, ORAL
     Route: 048
     Dates: start: 20080801, end: 20081118
  4. FLUANXOL (FLUPENTIXOL DIHYDROCHLORIDE) [Concomitant]
  5. PLENDIL [Concomitant]
  6. IMOVANE (ZOPICLONE) [Concomitant]

REACTIONS (3)
  - ANGLE CLOSURE GLAUCOMA [None]
  - DRUG INTERACTION [None]
  - VISUAL IMPAIRMENT [None]
